FAERS Safety Report 8511657-8 (Version None)
Quarter: 2012Q3

REPORT INFORMATION
  Report Type: 
  Country: None (occurrence: None)
  Receive Date: 20120716
  Receipt Date: 20120710
  Transmission Date: 20120928
  Serious: Yes (Other)
  Sender: FDA-Public Use
  Company Number: BR-SANOFI-AVENTIS-2012SA049349

PATIENT
  Age: 4 Year
  Sex: Female
  Weight: 20 kg

DRUGS (3)
  1. APIDRA SOLOSTAR [Suspect]
     Dosage: DOSE AND DAILY DOSE: ACCORDING TO GLYCEMIASTART DATE: ABOUT 5 MONTHS AGO
     Route: 058
     Dates: start: 20120101
  2. LANTUS [Suspect]
     Route: 065
     Dates: start: 20110101
  3. SOLOSTAR [Suspect]
     Indication: DEVICE THERAPY

REACTIONS (2)
  - CONVULSION [None]
  - DRUG ADMINISTERED TO PATIENT OF INAPPROPRIATE AGE [None]
